FAERS Safety Report 12144055 (Version 1)
Quarter: 2016Q1

REPORT INFORMATION
  Report Type: Spontaneous
  Country: US (occurrence: US)
  Receive Date: 20160304
  Receipt Date: 20160304
  Transmission Date: 20160526
  Serious: No
  Sender: FDA-Public Use
  Company Number: US-WEST-WARD PHARMACEUTICALS CORP.-US-H14001-15-00257

PATIENT
  Sex: Male

DRUGS (1)
  1. AMOXICILLIN CAPSULES USP [Suspect]
     Active Substance: AMOXICILLIN
     Indication: DENTAL CARE
     Route: 065
     Dates: start: 20150211

REACTIONS (1)
  - Abdominal pain upper [Unknown]

NARRATIVE: CASE EVENT DATE: 20150212
